FAERS Safety Report 5968725-4 (Version None)
Quarter: 2008Q4

REPORT INFORMATION
  Report Type: 
  Country: None (occurrence: None)
  Receive Date: 20081126
  Receipt Date: 20081117
  Transmission Date: 20090506
  Serious: Yes (Disabling)
  Sender: FDA-Public Use
  Company Number: B0547271A

PATIENT
  Age: 60 Year
  Sex: Female

DRUGS (1)
  1. ARIXTRA [Suspect]
     Dosage: 7.5MG PER DAY
     Route: 058
     Dates: start: 20080101, end: 20080101

REACTIONS (3)
  - ARTERIAL HAEMORRHAGE [None]
  - HAEMATOMA [None]
  - MOTOR DYSFUNCTION [None]
